FAERS Safety Report 21404188 (Version 1)
Quarter: 2022Q4

REPORT INFORMATION
  Report Type: Report from Study
  Country: US (occurrence: US)
  Receive Date: 20221003
  Receipt Date: 20221003
  Transmission Date: 20230112
  Serious: Yes (Other)
  Sender: FDA-Public Use
  Company Number: US-BAYER-2022A119680

PATIENT
  Age: 54 Year
  Sex: Female

DRUGS (3)
  1. STIVARGA [Suspect]
     Active Substance: REGORAFENIB
     Indication: Colon cancer
     Dosage: 80 MG, QD (DAILY FOR 21 DAYS)
     Route: 048
     Dates: end: 20220824
  2. STIVARGA [Suspect]
     Active Substance: REGORAFENIB
     Indication: Appendix cancer
     Dosage: 80 MG, QD FOR 21DAYS THEN 7DAYS OFF
     Route: 048
     Dates: start: 20220926
  3. STIVARGA [Suspect]
     Active Substance: REGORAFENIB
     Indication: Colon cancer

REACTIONS (11)
  - Neuropathy peripheral [Not Recovered/Not Resolved]
  - Anaemia [None]
  - Stomatitis [Not Recovered/Not Resolved]
  - Oral pain [Not Recovered/Not Resolved]
  - Pain in extremity [Not Recovered/Not Resolved]
  - Off label use [None]
  - Product dose omission issue [None]
  - Peripheral vascular disorder [None]
  - Peripheral coldness [None]
  - Pain [None]
  - Temperature intolerance [Not Recovered/Not Resolved]

NARRATIVE: CASE EVENT DATE: 20220824
